FAERS Safety Report 26005700 (Version 1)
Quarter: 2025Q4

REPORT INFORMATION
  Report Type: Spontaneous
  Country: CN (occurrence: CN)
  Receive Date: 20251106
  Receipt Date: 20251106
  Transmission Date: 20260117
  Serious: Yes (Hospitalization, Other)
  Sender: BAXTER
  Company Number: None

PATIENT
  Age: 45 Year
  Sex: Male
  Weight: 84 kg

DRUGS (6)
  1. CYCLOPHOSPHAMIDE [Suspect]
     Active Substance: CYCLOPHOSPHAMIDE
     Indication: Diffuse large B-cell lymphoma stage III
     Dosage: 1200 MG, QD, ROUTE: INTRAPUMP INJECTION
     Route: 042
     Dates: start: 20251016, end: 20251016
  2. SODIUM CHLORIDE [Suspect]
     Active Substance: SODIUM CHLORIDE
     Dosage: 20 ML, QD, 0.9% NS WITH VINCRISTINE SULFATE, ROUTE: INTRAVENOUS PUMP
     Route: 042
     Dates: start: 20251016, end: 20251016
  3. SODIUM CHLORIDE [Suspect]
     Active Substance: SODIUM CHLORIDE
     Dosage: 250 ML, QD, 0.9% NS WITH EPIRUBICIN HYDROCHLORIDE, ROUTE: INTRAVENOUS PUMP
     Route: 042
     Dates: start: 20251016, end: 20251016
  4. SODIUM CHLORIDE [Suspect]
     Active Substance: SODIUM CHLORIDE
     Dosage: 500 ML, QD, 0.9% NS WITH CYCLOPHOSPHAMIDE, ROUTE: INTRAVENOUS PUMP
     Route: 042
     Dates: start: 20251016, end: 20251016
  5. EPIRUBICIN HYDROCHLORIDE [Suspect]
     Active Substance: EPIRUBICIN HYDROCHLORIDE
     Indication: Diffuse large B-cell lymphoma stage III
     Dosage: 70 MG, QD, ROUTE: INTRAPUMP INJECTION
     Route: 042
     Dates: start: 20251016, end: 20251016
  6. VINCRISTINE SULFATE [Suspect]
     Active Substance: VINCRISTINE SULFATE
     Indication: Diffuse large B-cell lymphoma stage III
     Dosage: 2 MG, QD, ROUTE: INTRAPUMP INJECTION
     Route: 042
     Dates: start: 20251016, end: 20251016

REACTIONS (3)
  - Myelosuppression [Recovering/Resolving]
  - Temperature intolerance [Unknown]
  - Pyrexia [Unknown]

NARRATIVE: CASE EVENT DATE: 20251023
